FAERS Safety Report 7079919-1 (Version None)
Quarter: 2010Q4

REPORT INFORMATION
  Report Type: 
  Country: None (occurrence: None)
  Receive Date: 20101102
  Receipt Date: 20101013
  Transmission Date: 20110411
  Serious: Yes (Life-Threatening, Hospitalization)
  Sender: FDA-Public Use
  Company Number: DE-ELI_LILLY_AND_COMPANY-DE201010002996

PATIENT
  Sex: Female

DRUGS (8)
  1. CYMBALTA [Suspect]
     Indication: DEPRESSION
     Dosage: 30 MG, UNKNOWN
     Route: 048
     Dates: start: 20101005
  2. MARCUMAR [Concomitant]
  3. SIMVASTATIN [Concomitant]
     Dosage: 20 MG, UNKNOWN
  4. PANTAZOL [Concomitant]
     Dosage: 40 MG, UNKNOWN
  5. METOPROLOL SUCCINATE [Concomitant]
  6. TRIAMTERENE AND HYDROCHLOROTHIAZIDE [Concomitant]
  7. FOSAMAX [Concomitant]
  8. VITAMIN B-12 [Concomitant]

REACTIONS (1)
  - PROTHROMBIN TIME PROLONGED [None]
